FAERS Safety Report 4862634-X (Version None)
Quarter: 2005Q4

REPORT INFORMATION
  Report Type: 
  Country: None (occurrence: None)
  Receive Date: 20051221
  Receipt Date: 20051212
  Transmission Date: 20060501
  Serious: Yes (Death)
  Sender: FDA-Public Use
  Company Number: US-ROCHE-428454

PATIENT
  Age: 46 Year
  Sex: Female

DRUGS (8)
  1. VALIUM [Suspect]
     Indication: ANXIETY
     Route: 048
     Dates: end: 20000615
  2. PROPOXYPHENE HYDROCHLORIDE CAP [Suspect]
     Indication: PAIN
     Route: 048
     Dates: end: 20000615
  3. BIRTH CONTROL PILLS NOS [Concomitant]
     Route: 048
     Dates: end: 20000615
  4. COMPAZINE [Concomitant]
     Route: 048
     Dates: end: 20000615
  5. SULFAMETHOXAZOLE + TRIMETHOPRIM [Concomitant]
     Route: 048
     Dates: end: 20000615
  6. RANITIDINE [Concomitant]
  7. CARISOPRODOL [Concomitant]
  8. FLURAZEPAM [Concomitant]

REACTIONS (4)
  - COMPLETED SUICIDE [None]
  - DEPRESSION [None]
  - DRUG TOXICITY [None]
  - HAEMORRHAGE [None]
